FAERS Safety Report 24722112 (Version 1)
Quarter: 2024Q4

REPORT INFORMATION
  Report Type: Spontaneous
  Country: US (occurrence: None)
  Receive Date: 20241210
  Receipt Date: 20241210
  Transmission Date: 20250114
  Serious: Yes (Hospitalization)
  Sender: Public
  Company Number: None

PATIENT
  Age: 50 Year
  Sex: Male

DRUGS (1)
  1. CASIRIVIMAB\IMDEVIMAB [Suspect]
     Active Substance: CASIRIVIMAB\IMDEVIMAB
     Dosage: INTRAVENOUS
     Route: 042
     Dates: start: 20210823, end: 20210823

REACTIONS (4)
  - Acute kidney injury [None]
  - COVID-19 pneumonia [None]
  - Acute respiratory failure [None]
  - Thrombocytopenia [None]

NARRATIVE: CASE EVENT DATE: 20210823
